FAERS Safety Report 16762357 (Version 1)
Quarter: 2019Q3

REPORT INFORMATION
  Report Type: Spontaneous
  Country: CA (occurrence: CA)
  Receive Date: 20190831
  Receipt Date: 20190831
  Transmission Date: 20191005
  Serious: Yes (Hospitalization, Disabling, Other)
  Sender: FDA-Public Use
  Company Number: CA-TEVA-2019-CA-1100346

PATIENT
  Age: 10 Year
  Sex: Female
  Weight: 24 kg

DRUGS (9)
  1. METHYLPREDNISOLONE NOS [Concomitant]
     Active Substance: METHYLPREDNISOLONE
  2. CYTARABINE INJECTION [Concomitant]
     Active Substance: CYTARABINE
  3. MERCAPTOPURINE. [Concomitant]
     Active Substance: MERCAPTOPURINE
  4. PREDNISONE. [Concomitant]
     Active Substance: PREDNISONE
  5. ASPARAGINASE (E.COLI) [Concomitant]
     Active Substance: ASPARAGINASE
  6. DEXAMETHASONE. [Concomitant]
     Active Substance: DEXAMETHASONE
  7. PEGASPARAGINASE [Concomitant]
     Active Substance: PEGASPARGASE
  8. METHOTREXATE (MANUFACTURER UNKNOWN) [Concomitant]
     Active Substance: METHOTREXATE
  9. VINCRISTINE SULFATE. [Suspect]
     Active Substance: VINCRISTINE SULFATE
     Indication: T-CELL TYPE ACUTE LEUKAEMIA
     Route: 042

REACTIONS (10)
  - Gait disturbance [Recovered/Resolved]
  - Ergotherapy [Recovered/Resolved]
  - Back pain [Recovered/Resolved]
  - Muscular weakness [Recovered/Resolved]
  - Physiotherapy [Recovered/Resolved]
  - Neuropathy peripheral [Recovered/Resolved]
  - Tremor [Recovered/Resolved]
  - Pain in extremity [Recovered/Resolved]
  - Dysgraphia [Recovered/Resolved]
  - Ligament sprain [Recovered/Resolved]
